FAERS Safety Report 23085435 (Version 1)
Quarter: 2023Q4

REPORT INFORMATION
  Report Type: Spontaneous
  Country: CN (occurrence: CN)
  Receive Date: 20231019
  Receipt Date: 20231019
  Transmission Date: 20240109
  Serious: Yes (Other)
  Sender: FDA-Public Use
  Company Number: CN-BoehringerIngelheim-2023-BI-266429

PATIENT
  Age: 66 Year
  Sex: Female
  Weight: 55.7 kg

DRUGS (5)
  1. ALTEPLASE [Suspect]
     Active Substance: ALTEPLASE
     Indication: Cerebral infarction
     Dosage: TOTAL 50MG?10%) WAS INJECTED INTRAVENOUSLY, , AND THE REST WAS PUMPED IN WITHIN ONE HOUR LATER]
     Route: 042
     Dates: start: 20231001, end: 20231001
  2. ALTEPLASE [Suspect]
     Active Substance: ALTEPLASE
     Dosage: TOTAL 50MG? 10%) WAS INJECTED INTRAVENOUSLY, , AND THE REST WAS PUMPED IN WITHIN ONE HOUR LATER]
     Route: 042
     Dates: start: 20231001, end: 20231001
  3. BUTYLPHTHALIDE [Concomitant]
     Active Substance: BUTYLPHTHALIDE
     Indication: Cerebral infarction
     Route: 042
     Dates: start: 20231001, end: 20231005
  4. SODIUM CHLORIDE [Concomitant]
     Active Substance: SODIUM CHLORIDE
     Indication: Drug therapy
     Route: 042
     Dates: start: 20231001, end: 20231005
  5. PIPERACILLIN SODIUM\TAZOBACTAM SODIUM [Concomitant]
     Active Substance: PIPERACILLIN SODIUM\TAZOBACTAM SODIUM
     Indication: Enteritis
     Route: 042
     Dates: start: 20231001, end: 20231005

REACTIONS (4)
  - Anaphylactic shock [Recovered/Resolved]
  - Chills [Recovered/Resolved]
  - Pyrexia [Recovered/Resolved]
  - Haemorrhage [Recovered/Resolved]

NARRATIVE: CASE EVENT DATE: 20231001
